FAERS Safety Report 7308728-0 (Version None)
Quarter: 2011Q1

REPORT INFORMATION
  Report Type: 
  Country: None (occurrence: None)
  Receive Date: 20110223
  Receipt Date: 20110211
  Transmission Date: 20110831
  Serious: Yes (Hospitalization, Other)
  Sender: FDA-Public Use
  Company Number: PHHO2010BE08131

PATIENT
  Sex: Male
  Weight: 70 kg

DRUGS (19)
  1. BLINDED ALISKIREN [Suspect]
     Indication: CARDIAC FAILURE
     Dosage: LEVEL 1
     Route: 048
     Dates: start: 20090911, end: 20090924
  2. BLINDED NO TREATMENT RECEIVED [Suspect]
     Dosage: LEVEL 2
     Dates: start: 20090925, end: 20100501
  3. ENALAPRIL MALEATE [Suspect]
     Indication: CARDIAC FAILURE
     Dosage: UNK
  4. BLINDED ALISKIREN [Suspect]
     Dosage: LEVEL 1
     Route: 048
     Dates: start: 20100517
  5. DIURETICS [Suspect]
  6. ALDACTONE [Concomitant]
  7. BLINDED ENALAPRIL [Suspect]
     Dosage: LEVEL 2
     Dates: start: 20090925, end: 20100501
  8. BLINDED NO TREATMENT RECEIVED [Suspect]
     Dosage: NO TREATMENT
     Dates: start: 20100501, end: 20100516
  9. BLINDED ALISKIREN [Suspect]
     Dosage: LEVEL 2
     Dates: start: 20090925, end: 20100501
  10. BLINDED ENALAPRIL [Suspect]
     Dosage: LEVEL 1
     Route: 048
     Dates: start: 20100517
  11. ULTRA K [Suspect]
  12. KREDEX [Concomitant]
  13. ALISKIREN [Suspect]
     Indication: CARDIAC FAILURE
     Dosage: UNK
     Route: 048
     Dates: start: 20090925
  14. BLINDED ENALAPRIL [Suspect]
     Indication: CARDIAC FAILURE
     Dosage: LEVEL 1
     Route: 048
     Dates: start: 20090911, end: 20090924
  15. BLINDED ENALAPRIL [Suspect]
     Dosage: NO TREATMENT
     Dates: start: 20100501, end: 20100516
  16. BLINDED NO TREATMENT RECEIVED [Suspect]
     Dosage: LEVEL 1
     Route: 048
     Dates: start: 20100517
  17. BURINEX [Suspect]
     Indication: CARDIAC FAILURE
     Dosage: 2.5 MG, BID
     Dates: start: 20100401
  18. BLINDED NO TREATMENT RECEIVED [Suspect]
     Indication: CARDIAC FAILURE
     Dosage: LEVEL 1
     Route: 048
     Dates: start: 20090911, end: 20090924
  19. BLINDED ALISKIREN [Suspect]
     Dosage: NO TREATMENT
     Dates: start: 20100501, end: 20100516

REACTIONS (12)
  - GASTROENTERITIS VIRAL [None]
  - SYNCOPE [None]
  - HYPOKALAEMIA [None]
  - LOSS OF CONSCIOUSNESS [None]
  - DIARRHOEA [None]
  - DECREASED APPETITE [None]
  - ACCIDENTAL OVERDOSE [None]
  - GASTRIC INFECTION [None]
  - HYPONATRAEMIA [None]
  - VOMITING [None]
  - NAUSEA [None]
  - HYPOTENSION [None]
